FAERS Safety Report 6543943-5 (Version None)
Quarter: 2010Q1

REPORT INFORMATION
  Report Type: 
  Country: None (occurrence: None)
  Receive Date: 20100120
  Receipt Date: 20100115
  Transmission Date: 20100710
  Serious: Yes (Other)
  Sender: FDA-Public Use
  Company Number: US-ELI_LILLY_AND_COMPANY-US201001003559

PATIENT
  Sex: Female

DRUGS (5)
  1. HUMULIN N [Suspect]
     Indication: DIABETES MELLITUS
     Dosage: 30 U, DAILY (1/D)
     Dates: start: 20030101
  2. CARAFATE [Concomitant]
  3. PREDNISONE [Concomitant]
  4. CONTRAST MEDIA [Concomitant]
  5. GLYBURIDE [Concomitant]
     Dosage: 5 MG, UNK

REACTIONS (23)
  - BLOOD GLUCOSE DECREASED [None]
  - BLOOD GLUCOSE INCREASED [None]
  - CHEST DISCOMFORT [None]
  - CHEST PAIN [None]
  - CONSTIPATION [None]
  - CORONARY ARTERY OCCLUSION [None]
  - COUGH [None]
  - DIARRHOEA [None]
  - DYSPEPSIA [None]
  - DYSPNOEA [None]
  - FEELING ABNORMAL [None]
  - GASTRITIS [None]
  - HYPERHIDROSIS [None]
  - IRRITABLE BOWEL SYNDROME [None]
  - KNEE ARTHROPLASTY [None]
  - MALIGNANT MELANOMA [None]
  - MEMORY IMPAIRMENT [None]
  - NEOPLASM MALIGNANT [None]
  - NUCLEAR MAGNETIC RESONANCE IMAGING [None]
  - PAIN [None]
  - POLLAKIURIA [None]
  - TREMOR [None]
  - VIRAL INFECTION [None]
